FAERS Safety Report 5727881-3 (Version None)
Quarter: 2008Q2

REPORT INFORMATION
  Report Type: 
  Country: None (occurrence: None)
  Receive Date: 20080505
  Receipt Date: 20080423
  Transmission Date: 20081010
  Serious: Yes (Hospitalization)
  Sender: FDA-Public Use
  Company Number: US-PFIZER INC-2006034373

PATIENT
  Sex: Male
  Weight: 93 kg

DRUGS (22)
  1. SU-011,248 [Suspect]
     Route: 048
     Dates: start: 20051026, end: 20051122
  2. SU-011,248 [Suspect]
     Route: 048
  3. DOXEPIN HCL [Suspect]
     Route: 048
  4. HYDROCODONE BITARTRATE [Suspect]
     Dosage: TEXT:2 TABLETS-FREQ:AT BEDTIME
     Route: 048
     Dates: start: 20000101, end: 20051221
  5. DIAZEPAM [Suspect]
     Dosage: TEXT:5+2.5MG-FREQ:AT BEDTIME
     Route: 048
  6. AMBIEN [Suspect]
     Route: 048
  7. OXYCONTIN [Concomitant]
     Dosage: DAILY DOSE:40MG
     Route: 048
  8. METFORMIN HCL [Concomitant]
     Route: 048
  9. LANTUS [Concomitant]
     Dosage: TEXT:8 UNITS
     Route: 058
  10. LIPITOR [Concomitant]
     Route: 048
  11. ZETIA [Concomitant]
     Route: 048
  12. ALTACE [Concomitant]
     Route: 048
  13. ATENOLOL [Concomitant]
     Route: 048
  14. TAMSULOSIN HCL [Concomitant]
     Route: 048
  15. PROSCAR [Concomitant]
     Route: 048
  16. ZANTAC [Concomitant]
     Route: 048
  17. MONTELUKAST SODIUM [Concomitant]
     Dosage: DAILY DOSE:10MG
     Route: 048
  18. SEREVENT [Concomitant]
     Dosage: DAILY DOSE:50MCG
     Route: 055
  19. FLOVENT [Concomitant]
     Dosage: DAILY DOSE:440MCG-FREQ:'
     Route: 055
  20. ACTIGALL [Concomitant]
     Route: 048
  21. REMERON [Concomitant]
     Dosage: DAILY DOSE:7.5MG-FREQ:AT BEDTIME
     Route: 048
  22. STOOL SOFTENER [Concomitant]
     Route: 048

REACTIONS (7)
  - CHILLS [None]
  - CONFUSIONAL STATE [None]
  - ENCEPHALOPATHY [None]
  - HYPOTENSION [None]
  - MENTAL IMPAIRMENT [None]
  - PYREXIA [None]
  - SOMNOLENCE [None]
